FAERS Safety Report 9179919 (Version 1)
Quarter: 2012Q4

REPORT INFORMATION
  Report Type: 
  Country: US (occurrence: US)
  Receive Date: 20121029
  Receipt Date: 20121029
  Transmission Date: 20130627
  Serious: No
  Sender: FDA-Public Use
  Company Number: US-AMGEN-USASP2012054193

PATIENT
  Age: 56 Year
  Sex: Female
  Weight: 72.56 kg

DRUGS (5)
  1. ENBREL [Suspect]
     Indication: PRODUCT USED FOR UNKNOWN INDICATION
     Dosage: 50 mg, qwk
     Route: 058
  2. SIMVASTATIN [Concomitant]
     Dosage: 20 mg, UNK
  3. HYDROCHLOROTH [Concomitant]
     Dosage: 25 mg, UNK
  4. ADRENAL [Concomitant]
  5. DHEA [Concomitant]
     Dosage: 10 mg, UNK

REACTIONS (1)
  - Injection site reaction [Unknown]
